FAERS Safety Report 22400865 (Version 1)
Quarter: 2023Q2

REPORT INFORMATION
  Report Type: Spontaneous
  Country: DK (occurrence: DK)
  Receive Date: 20230602
  Receipt Date: 20230602
  Transmission Date: 20230722
  Serious: Yes (Other)
  Sender: FDA-Public Use
  Company Number: None

PATIENT
  Age: 54 Year
  Sex: Male

DRUGS (1)
  1. ZOLEDRONIC ACID [Suspect]
     Active Substance: ZOLEDRONIC ACID
     Indication: Osteoporosis
     Dosage: STRENGTH: 4 MG/5ML
     Route: 042
     Dates: start: 20230125, end: 20230125

REACTIONS (6)
  - Photophobia [Recovered/Resolved]
  - Ocular hyperaemia [Recovered/Resolved]
  - Vision blurred [Recovered/Resolved]
  - Eye irritation [Recovered/Resolved]
  - Eye pain [Recovered/Resolved]
  - Iridocyclitis [Recovered/Resolved]

NARRATIVE: CASE EVENT DATE: 20230126
